FAERS Safety Report 20297305 (Version 1)
Quarter: 2022Q1

REPORT INFORMATION
  Report Type: Spontaneous
  Country: US (occurrence: US)
  Receive Date: 20220105
  Receipt Date: 20220105
  Transmission Date: 20220424
  Serious: No
  Sender: FDA-Public Use
  Company Number: US-AMGEN-USASP2021207611

PATIENT
  Sex: Female

DRUGS (2)
  1. XGEVA [Suspect]
     Active Substance: DENOSUMAB
     Indication: Metastases to bone
     Dosage: 120 MILLIGRAM, Q3MO
     Route: 065
     Dates: start: 202005
  2. XGEVA [Suspect]
     Active Substance: DENOSUMAB
     Indication: Breast cancer metastatic

REACTIONS (2)
  - Off label use [Unknown]
  - Tooth extraction [Unknown]
